FAERS Safety Report 22596390 (Version 1)
Quarter: 2023Q2

REPORT INFORMATION
  Report Type: Spontaneous
  Country: None (occurrence: US)
  Receive Date: 20230613
  Receipt Date: 20230613
  Transmission Date: 20230722
  Serious: No
  Sender: FDA-Public Use
  Company Number: US-Ascend Therapeutics US, LLC-2142660

PATIENT
  Age: 49 Year
  Sex: Male

DRUGS (2)
  1. ANDROGEL 1% [Suspect]
     Active Substance: TESTOSTERONE
     Indication: Product used for unknown indication
     Route: 065
     Dates: start: 20230428
  2. TESTOSTERONE [Suspect]
     Active Substance: TESTOSTERONE
     Route: 065
     Dates: start: 20230428

REACTIONS (4)
  - Throat irritation [Unknown]
  - Eye irritation [Unknown]
  - Rhinorrhoea [Unknown]
  - Product odour abnormal [None]

NARRATIVE: CASE EVENT DATE: 20230428
